FAERS Safety Report 23436847 (Version 1)
Quarter: 2024Q1

REPORT INFORMATION
  Report Type: Spontaneous
  Country: US (occurrence: US)
  Receive Date: 20240124
  Receipt Date: 20240124
  Transmission Date: 20240410
  Serious: Yes (Other)
  Sender: FDA-Public Use
  Company Number: US-SA-SAC20240122000833

PATIENT
  Sex: Female

DRUGS (2)
  1. DUPIXENT [Suspect]
     Active Substance: DUPILUMAB
     Indication: Asthma
     Dosage: 300 MG QOW
     Route: 058
  2. SINGULAIR [Concomitant]
     Active Substance: MONTELUKAST SODIUM

REACTIONS (9)
  - Immunodeficiency [Unknown]
  - Stress [Unknown]
  - Dyspnoea [Unknown]
  - Influenza [Unknown]
  - Nasal congestion [Unknown]
  - Multiple allergies [Unknown]
  - Depressed mood [Unknown]
  - Oxygen saturation decreased [Unknown]
  - Asthma [Unknown]
